FAERS Safety Report 5928391-0 (Version None)
Quarter: 2008Q4

REPORT INFORMATION
  Report Type: 
  Country: None (occurrence: None)
  Receive Date: 20081023
  Receipt Date: 20081011
  Transmission Date: 20090506
  Serious: Yes (Hospitalization, Disabling, Other)
  Sender: FDA-Public Use
  Company Number: US-PFIZER INC-2008085952

PATIENT
  Age: 38 Year
  Sex: Male

DRUGS (4)
  1. LYRICA [Suspect]
     Indication: NEUROPATHY PERIPHERAL
     Dates: start: 20080801, end: 20080825
  2. GABAPENTIN [Suspect]
     Indication: NEUROPATHY PERIPHERAL
  3. WELLBUTRIN [Concomitant]
  4. TRAZODONE HCL [Concomitant]

REACTIONS (7)
  - ASTHENIA [None]
  - DENERVATION ATROPHY [None]
  - DISABILITY [None]
  - FALL [None]
  - PERONEAL NERVE PALSY [None]
  - URINARY RETENTION [None]
  - WEIGHT BEARING DIFFICULTY [None]
